FAERS Safety Report 8315148-9 (Version None)
Quarter: 2012Q2

REPORT INFORMATION
  Report Type: 
  Country: None (occurrence: None)
  Receive Date: 20120426
  Receipt Date: 20120423
  Transmission Date: 20120825
  Serious: Yes (Other)
  Sender: FDA-Public Use
  Company Number: US-GLAXOSMITHKLINE-A0967017A

PATIENT
  Age: 60 Year
  Sex: Female
  Weight: 50 kg

DRUGS (6)
  1. LEXAPRO [Suspect]
     Indication: DEPRESSION
     Dosage: 20MG PER DAY
     Route: 065
  2. LAMICTAL [Suspect]
     Indication: EPILEPSY
     Dosage: 150MG TWICE PER DAY
     Route: 048
  3. PROVERA [Suspect]
     Indication: PRODUCT USED FOR UNKNOWN INDICATION
     Dosage: 10MG PER DAY
     Route: 048
  4. VIMPAT [Suspect]
     Indication: EPILEPSY
     Dosage: 100MG FOUR TIMES PER DAY
     Route: 065
  5. PREMARIN [Suspect]
     Indication: PRODUCT USED FOR UNKNOWN INDICATION
     Dosage: .625MG PER DAY
     Route: 048
  6. TOPAMAX [Suspect]
     Indication: EPILEPSY
     Dosage: 300MG PER DAY
     Route: 048

REACTIONS (6)
  - TREMOR [None]
  - EPILEPSY [None]
  - BALANCE DISORDER [None]
  - SOMNOLENCE [None]
  - DRUG INTERACTION [None]
  - DRUG INEFFECTIVE [None]
